FAERS Safety Report 16625873 (Version 3)
Quarter: 2019Q3

REPORT INFORMATION
  Report Type: Spontaneous
  Country: CH (occurrence: CH)
  Receive Date: 20190724
  Receipt Date: 20190902
  Transmission Date: 20191004
  Serious: Yes (Death, Other)
  Sender: FDA-Public Use
  Company Number: CH-ASTRAZENECA-2019SF04282

PATIENT
  Age: 54 Year
  Sex: Female
  Weight: 61 kg

DRUGS (13)
  1. TRANSIPEG [Concomitant]
  2. FASLODEX [Suspect]
     Active Substance: FULVESTRANT
     Indication: BREAST CANCER METASTATIC
     Route: 030
     Dates: start: 201904, end: 20190612
  3. PALBOCICLIB [Suspect]
     Active Substance: PALBOCICLIB
     Route: 048
     Dates: start: 201904, end: 20190612
  4. PALBOCICLIB [Suspect]
     Active Substance: PALBOCICLIB
     Route: 048
     Dates: start: 20190501
  5. PANTOZOL [Concomitant]
     Active Substance: PANTOPRAZOLE SODIUM
     Dosage: 1-0-0
  6. NOZINAN [Concomitant]
     Active Substance: LEVOMEPROMAZINE
  7. XARELTO [Concomitant]
     Active Substance: RIVAROXABAN
  8. OXYNORM [Concomitant]
     Active Substance: OXYCODONE HYDROCHLORIDE
  9. RISPERIDON [Concomitant]
     Active Substance: RISPERIDONE
  10. FASLODEX [Suspect]
     Active Substance: FULVESTRANT
     Indication: BREAST CANCER METASTATIC
     Route: 030
     Dates: start: 20190325
  11. TEMESTA [Concomitant]
     Dosage: 1/2-0-0
  12. CALCIUM D3 [Concomitant]
     Active Substance: CALCIUM\CHOLECALCIFEROL
  13. NOVALGIN [Concomitant]

REACTIONS (1)
  - Acute hepatic failure [Fatal]
